FAERS Safety Report 13121007 (Version 1)
Quarter: 2017Q1

REPORT INFORMATION
  Report Type: Spontaneous
  Country: BR (occurrence: BR)
  Receive Date: 20170117
  Receipt Date: 20170117
  Transmission Date: 20170428
  Serious: Yes (Other)
  Sender: FDA-Public Use
  Company Number: BR-BAUSCH-BL-2017-001291

PATIENT
  Age: 49 Year
  Sex: Female
  Weight: 87 kg

DRUGS (4)
  1. DONAREN [Concomitant]
     Active Substance: TRAZODONE HYDROCHLORIDE
     Indication: PRODUCT USED FOR UNKNOWN INDICATION
  2. WELLBUTRIN XL [Suspect]
     Active Substance: BUPROPION HYDROCHLORIDE
     Indication: PANIC REACTION
  3. WELLBUTRIN XL [Suspect]
     Active Substance: BUPROPION HYDROCHLORIDE
     Indication: DEPRESSION
  4. WELLBUTRIN XL [Suspect]
     Active Substance: BUPROPION HYDROCHLORIDE
     Indication: ANXIETY
     Route: 048

REACTIONS (16)
  - Deafness bilateral [Recovered/Resolved]
  - Ear discomfort [Recovered/Resolved]
  - Urinary tract infection [Recovered/Resolved]
  - Vulvovaginal burning sensation [Recovered/Resolved]
  - Blood urine [Recovered/Resolved]
  - Zika virus infection [Recovered/Resolved]
  - Ear disorder [Recovered/Resolved]
  - Anxiety [Recovered/Resolved]
  - Pyrexia [Recovered/Resolved]
  - Off label use [Not Recovered/Not Resolved]
  - Drug dependence [Not Recovered/Not Resolved]
  - Panic reaction [Recovered/Resolved]
  - Condition aggravated [Unknown]
  - Depression [Recovered/Resolved]
  - Product use issue [Not Recovered/Not Resolved]
  - Overdose [Not Recovered/Not Resolved]

NARRATIVE: CASE EVENT DATE: 2015
